FAERS Safety Report 10496783 (Version 2)
Quarter: 2014Q4

REPORT INFORMATION
  Report Type: Report from Study
  Country: DE (occurrence: DE)
  Receive Date: 20141006
  Receipt Date: 20141006
  Transmission Date: 20150528
  Serious: Yes (Hospitalization)
  Sender: FDA-Public Use
  Company Number: DE-BIOGENIDEC-2013BI092310

PATIENT
  Age: 68 Year
  Sex: Female

DRUGS (1)
  1. AVONEX [Suspect]
     Active Substance: INTERFERON BETA-1A
     Indication: MULTIPLE SCLEROSIS
     Route: 030
     Dates: start: 20121201

REACTIONS (2)
  - Disturbance in attention [Recovered/Resolved with Sequelae]
  - Muscular weakness [Recovered/Resolved with Sequelae]

NARRATIVE: CASE EVENT DATE: 20130101
